FAERS Safety Report 6518603-7 (Version None)
Quarter: 2009Q4

REPORT INFORMATION
  Report Type: 
  Country: None (occurrence: None)
  Receive Date: 20091228
  Receipt Date: 20091216
  Transmission Date: 20100525
  Serious: Yes (Other)
  Sender: FDA-Public Use
  Company Number: JP-ELI_LILLY_AND_COMPANY-JP200912001323

PATIENT
  Sex: Female
  Weight: 48 kg

DRUGS (3)
  1. EVISTA [Suspect]
     Indication: OSTEOPOROSIS
     Dosage: 60 MG, DAILY (1/D)
     Route: 048
     Dates: start: 20050702, end: 20091209
  2. PREMINENT [Concomitant]
     Indication: HYPERTENSION
     Dosage: 60 MG, DAILY (1/D)
     Route: 048
     Dates: start: 20071128
  3. PLATIBIT [Concomitant]
     Indication: OSTEOPOROSIS
     Dosage: 0.25 UG, DAILY (1/D)
     Route: 048
     Dates: start: 20090819, end: 20091209

REACTIONS (1)
  - OSTEONECROSIS [None]
